FAERS Safety Report 8598190-2 (Version None)
Quarter: 2012Q3

REPORT INFORMATION
  Report Type: 
  Country: None (occurrence: None)
  Receive Date: 20120816
  Receipt Date: 20120515
  Transmission Date: 20120928
  Serious: Yes (Congenital Anomaly, Other)
  Sender: FDA-Public Use
  Company Number: US-TEVA-353499USA

PATIENT
  Sex: Male
  Weight: 2.792 kg

DRUGS (5)
  1. ERGOCALCIFEROL [Concomitant]
  2. MULTI-VITAMINS [Concomitant]
  3. GUAIFENESIN [Concomitant]
  4. ACYCLOVIR [Concomitant]
  5. NUVIGIL [Suspect]

REACTIONS (2)
  - CEREBROVASCULAR DISORDER [None]
  - HYDROCEPHALUS [None]
